FAERS Safety Report 15974295 (Version 1)
Quarter: 2019Q1

REPORT INFORMATION
  Report Type: Spontaneous
  Country: BR (occurrence: BR)
  Receive Date: 20190218
  Receipt Date: 20190218
  Transmission Date: 20190418
  Serious: Yes (Hospitalization)
  Sender: FDA-Public Use
  Company Number: BR-SA-2019SA037352

PATIENT
  Age: 38 Year
  Sex: Female
  Weight: 85 kg

DRUGS (4)
  1. HUMALOG [Concomitant]
     Active Substance: INSULIN LISPRO
     Indication: DIABETES MELLITUS
     Dosage: 1 UI FOR EACH 2G CARBOHYDRATE
     Route: 058
     Dates: start: 201509
  2. LANTUS [Suspect]
     Active Substance: INSULIN GLARGINE
     Indication: DIABETES MELLITUS
     Dosage: 45 IU, QD
     Route: 058
     Dates: start: 201509
  3. NATELE [Concomitant]
     Active Substance: VITAMINS
     Indication: PREGNANCY
     Dosage: 1 DF, QD
     Route: 048
     Dates: start: 20181230
  4. VITAMIN D [Concomitant]
     Active Substance: CHOLECALCIFEROL
     Indication: PREGNANCY
     Dosage: 4000 UIU, QD
     Route: 048
     Dates: start: 201509

REACTIONS (4)
  - Premature baby [Unknown]
  - Glycosylated haemoglobin increased [Unknown]
  - Blood glucose fluctuation [Unknown]
  - Exposure during pregnancy [Unknown]
